FAERS Safety Report 24264464 (Version 2)
Quarter: 2024Q3

REPORT INFORMATION
  Report Type: Spontaneous
  Country: JP (occurrence: JP)
  Receive Date: 20240829
  Receipt Date: 20240925
  Transmission Date: 20241017
  Serious: Yes (Other)
  Sender: ASTELLAS
  Company Number: JP-ASTELLAS-2024-AER-000287

PATIENT
  Age: 24 Year
  Sex: Female

DRUGS (22)
  1. PROGRAF [Suspect]
     Active Substance: TACROLIMUS
     Indication: Lupus nephritis
     Route: 065
     Dates: start: 2017
  2. PROGRAF [Suspect]
     Active Substance: TACROLIMUS
     Route: 065
     Dates: start: 2018, end: 2019
  3. PROGRAF [Suspect]
     Active Substance: TACROLIMUS
     Route: 065
     Dates: start: 2019, end: 2021
  4. PROGRAF [Suspect]
     Active Substance: TACROLIMUS
     Route: 065
     Dates: start: 2021, end: 2021
  5. TACROLIMUS [Suspect]
     Active Substance: TACROLIMUS
     Indication: Immunosuppressant drug therapy
     Route: 065
     Dates: start: 2021
  6. MYCOPHENOLATE MOFETIL [Concomitant]
     Active Substance: MYCOPHENOLATE MOFETIL
     Indication: Product used for unknown indication
     Route: 065
     Dates: start: 2016
  7. MYCOPHENOLATE MOFETIL [Concomitant]
     Active Substance: MYCOPHENOLATE MOFETIL
     Route: 065
     Dates: end: 2019
  8. MYCOPHENOLATE MOFETIL [Concomitant]
     Active Substance: MYCOPHENOLATE MOFETIL
     Route: 065
     Dates: start: 2019, end: 2020
  9. MYCOPHENOLATE MOFETIL [Concomitant]
     Active Substance: MYCOPHENOLATE MOFETIL
     Route: 065
     Dates: start: 2020, end: 2021
  10. MYCOPHENOLATE MOFETIL [Concomitant]
     Active Substance: MYCOPHENOLATE MOFETIL
     Route: 065
     Dates: start: 2021, end: 2021
  11. MYCOPHENOLATE MOFETIL [Concomitant]
     Active Substance: MYCOPHENOLATE MOFETIL
     Route: 065
     Dates: start: 2021
  12. PREDNISOLONE [Concomitant]
     Active Substance: PREDNISOLONE
     Indication: Product used for unknown indication
     Route: 065
     Dates: start: 2016, end: 2017
  13. PREDNISOLONE [Concomitant]
     Active Substance: PREDNISOLONE
     Route: 065
     Dates: start: 2017
  14. PREDNISOLONE [Concomitant]
     Active Substance: PREDNISOLONE
     Route: 065
     Dates: end: 2018
  15. PREDNISOLONE [Concomitant]
     Active Substance: PREDNISOLONE
     Route: 065
     Dates: start: 2018, end: 2018
  16. PREDNISOLONE [Concomitant]
     Active Substance: PREDNISOLONE
     Route: 065
     Dates: start: 2018, end: 2021
  17. PREDNISOLONE [Concomitant]
     Active Substance: PREDNISOLONE
     Route: 065
     Dates: start: 2021, end: 2022
  18. PREDNISOLONE [Concomitant]
     Active Substance: PREDNISOLONE
     Route: 065
     Dates: start: 2022, end: 2023
  19. PREDNISOLONE [Concomitant]
     Active Substance: PREDNISOLONE
     Route: 065
     Dates: start: 2023
  20. BELIMUMAB [Concomitant]
     Active Substance: BELIMUMAB
     Indication: Product used for unknown indication
     Route: 065
     Dates: start: 2019
  21. HYDROXYCHLOROQUINE [Concomitant]
     Active Substance: HYDROXYCHLOROQUINE
     Indication: Product used for unknown indication
     Route: 065
     Dates: start: 2019
  22. EVEROLIMUS [Concomitant]
     Active Substance: EVEROLIMUS
     Indication: Product used for unknown indication
     Route: 065
     Dates: start: 2021

REACTIONS (5)
  - Mycobacterium avium complex infection [Unknown]
  - Antiphospholipid syndrome [Unknown]
  - Hypoaesthesia [Unknown]
  - Arterial occlusive disease [Unknown]
  - Cardiolipin antibody positive [Unknown]

NARRATIVE: CASE EVENT DATE: 20171110
